FAERS Safety Report 6870752-X (Version None)
Quarter: 2010Q3

REPORT INFORMATION
  Report Type: 
  Country: None (occurrence: None)
  Receive Date: 20100723
  Receipt Date: 20100709
  Transmission Date: 20110219
  Serious: Yes (Other)
  Sender: FDA-Public Use
  Company Number: PHHY2010US45384

PATIENT
  Age: 71 Year
  Sex: Female

DRUGS (12)
  1. EXFORGE [Suspect]
     Dosage: UNK, (1 TABLET DAILY)
     Route: 048
     Dates: end: 20100201
  2. EXFORGE [Suspect]
     Dosage: UNK, (1 TABLET DAILY)
     Route: 048
     Dates: start: 20100601, end: 20100601
  3. EXFORGE [Suspect]
     Dosage: UNK, (1 TABLET DAILY)
     Route: 048
     Dates: start: 20100601
  4. DIOVAN [Suspect]
     Dosage: UNK
     Dates: start: 20100201
  5. DIOVAN HCT [Suspect]
  6. PACERONE [Suspect]
     Indication: CARDIAC FIBRILLATION
     Dosage: 200 MG, QD
     Route: 048
     Dates: start: 20070101, end: 20090101
  7. PACERONE [Suspect]
     Dosage: 100 MG, QOD
     Route: 048
     Dates: start: 20090101, end: 20090101
  8. PACERONE [Suspect]
     Dosage: 200 MG, QD
     Route: 048
     Dates: start: 20090101
  9. VYTORIN [Concomitant]
  10. COREG [Concomitant]
  11. FUROSEMIDE [Concomitant]
     Dosage: UNK
     Dates: end: 20100628
  12. ZEGERID [Concomitant]

REACTIONS (6)
  - ALOPECIA [None]
  - ARRHYTHMIA [None]
  - FEELING HOT [None]
  - HYPERTENSION [None]
  - JOINT SWELLING [None]
  - WEIGHT INCREASED [None]
